FAERS Safety Report 4542439-X (Version None)
Quarter: 2004Q4

REPORT INFORMATION
  Report Type: 
  Country: None (occurrence: None)
  Receive Date: 20041229
  Receipt Date: 20041213
  Transmission Date: 20050328
  Serious: Yes (Hospitalization)
  Sender: FDA-Public Use
  Company Number: C04-T-188

PATIENT
  Age: 67 Year
  Sex: Male
  Weight: 99.7913 kg

DRUGS (7)
  1. NITROGLYCERIN [Suspect]
     Indication: ANGINA PECTORIS
     Dosage: ORAL, 0.4 MG 8 X A DAY
     Route: 048
     Dates: start: 20041101, end: 20041124
  2. LISINOPRIL [Concomitant]
  3. COREG [Concomitant]
  4. CRESTOR [Concomitant]
  5. ISOSORBIDE [Concomitant]
  6. ASPIRIN [Concomitant]
  7. NITROGLYCERIN SUBLINGUAL PRN [Concomitant]

REACTIONS (8)
  - BLOOD CREATINE PHOSPHOKINASE MB INCREASED [None]
  - BUNDLE BRANCH BLOCK LEFT [None]
  - CHEST PAIN [None]
  - DRUG INEFFECTIVE [None]
  - GALLBLADDER PAIN [None]
  - PHARMACEUTICAL PRODUCT COMPLAINT [None]
  - TACHYCARDIA [None]
  - TROPONIN INCREASED [None]
